FAERS Safety Report 5158670-9 (Version None)
Quarter: 2006Q4

REPORT INFORMATION
  Report Type: 
  Country: None (occurrence: None)
  Receive Date: 20061117
  Receipt Date: 20061113
  Transmission Date: 20070319
  Serious: Yes (Other)
  Sender: FDA-Public Use
  Company Number: FRWYE698314AUG06

PATIENT
  Age: 28 Year
  Sex: Female

DRUGS (1)
  1. TRINORDIOL (LEVONORGESTREL/ ETHINYL ESTRADIOL, TABLET) [Suspect]
     Indication: CONTRACEPTION
     Dosage: 1 TABLET 1X PER 1 DAY; ORAL
     Route: 048
     Dates: start: 19960101

REACTIONS (3)
  - ALLERGY TEST POSITIVE [None]
  - AUTOIMMUNE THYROIDITIS [None]
  - URTICARIA CHRONIC [None]
